FAERS Safety Report 17632568 (Version 1)
Quarter: 2020Q2

REPORT INFORMATION
  Report Type: Spontaneous
  Country: US (occurrence: US)
  Receive Date: 20200406
  Receipt Date: 20200406
  Transmission Date: 20200713
  Serious: No
  Sender: FDA-Public Use
  Company Number: US-JNJFOC-20200336051

PATIENT
  Sex: Female
  Weight: 59.02 kg

DRUGS (1)
  1. STELARA [Suspect]
     Active Substance: USTEKINUMAB
     Indication: CROHN^S DISEASE
     Route: 042
     Dates: start: 201702

REACTIONS (5)
  - Dyspnoea [Unknown]
  - Incorrect route of product administration [Unknown]
  - Dizziness [Unknown]
  - Off label use [Unknown]
  - Incorrect dose administered [Unknown]
